FAERS Safety Report 10276368 (Version 5)
Quarter: 2014Q3

REPORT INFORMATION
  Report Type: Report from Study
  Country: FR (occurrence: FR)
  Receive Date: 20140703
  Receipt Date: 20140925
  Transmission Date: 20150326
  Serious: Yes (Death, Hospitalization)
  Sender: FDA-Public Use
  Company Number: FR-ROCHE-1427505

PATIENT
  Age: 63 Year
  Sex: Female
  Weight: 76 kg

DRUGS (11)
  1. DUPHALAC [Concomitant]
     Active Substance: LACTULOSE
     Indication: CONSTIPATION
     Route: 048
     Dates: start: 20140618, end: 20140620
  2. LASILIX [Concomitant]
     Active Substance: FUROSEMIDE
     Route: 048
     Dates: start: 20140606, end: 20140620
  3. SKENAN [Concomitant]
     Active Substance: MORPHINE SULFATE
     Indication: PAIN
     Route: 065
     Dates: start: 2009, end: 20110620
  4. SOLU-MEDROL [Concomitant]
     Active Substance: METHYLPREDNISOLONE SODIUM SUCCINATE
     Route: 042
     Dates: start: 20140619, end: 20140620
  5. SOLU-MEDROL [Concomitant]
     Active Substance: METHYLPREDNISOLONE SODIUM SUCCINATE
     Route: 048
     Dates: start: 20140606, end: 20140606
  6. INNOHEP [Concomitant]
     Active Substance: TINZAPARIN SODIUM
     Indication: THROMBOSIS PROPHYLAXIS
     Route: 042
     Dates: start: 2013, end: 20140620
  7. LASILIX [Concomitant]
     Active Substance: FUROSEMIDE
     Indication: ENCEPHALOPATHY
     Route: 042
     Dates: start: 20140620, end: 20140620
  8. PREDNISONE. [Concomitant]
     Active Substance: PREDNISONE
     Indication: PAIN
     Route: 048
     Dates: start: 20140606, end: 20140620
  9. PERFALGAN [Concomitant]
     Active Substance: ACETAMINOPHEN
     Indication: PAIN
     Route: 042
     Dates: start: 20140619
  10. ACTISKENAN (MORPHINE CHLORHYDRATE) [Concomitant]
     Indication: PAIN
     Route: 065
     Dates: start: 2009, end: 20140620
  11. TRASTUZUMAB EMTANSINE [Suspect]
     Active Substance: ADO-TRASTUZUMAB EMTANSINE
     Indication: BREAST CANCER METASTATIC
     Dosage: LAST DOSE PRIOR TO SAE: 12/JUN/2014
     Route: 042
     Dates: start: 20140612, end: 20140612

REACTIONS (3)
  - General physical health deterioration [Fatal]
  - Hypercalcaemia [Recovered/Resolved with Sequelae]
  - Pelvic organ injury [Not Recovered/Not Resolved]

NARRATIVE: CASE EVENT DATE: 20140618
